FAERS Safety Report 15335956 (Version 1)
Quarter: 2018Q3

REPORT INFORMATION
  Report Type: Report from Study
  Country: US (occurrence: US)
  Receive Date: 20180830
  Receipt Date: 20180830
  Transmission Date: 20181010
  Serious: Yes (Other)
  Sender: FDA-Public Use
  Company Number: US-SA-2017SA086059

PATIENT
  Age: 33 Year
  Sex: Female

DRUGS (1)
  1. INSULIN GLARGINE [Suspect]
     Active Substance: INSULIN GLARGINE
     Indication: TYPE 2 DIABETES MELLITUS
     Dosage: 80 U, UNK
     Route: 051
     Dates: start: 20170301

REACTIONS (4)
  - Asthenia [Unknown]
  - Fatigue [Unknown]
  - Blood glucose fluctuation [Unknown]
  - Depression suicidal [Unknown]

NARRATIVE: CASE EVENT DATE: 2017
